FAERS Safety Report 5754981-4 (Version None)
Quarter: 2008Q2

REPORT INFORMATION
  Report Type: 
  Country: None (occurrence: None)
  Receive Date: 20080602
  Receipt Date: 20080523
  Transmission Date: 20081010
  Serious: Yes (Other)
  Sender: FDA-Public Use
  Company Number: FR-ELI_LILLY_AND_COMPANY-FR200805005077

PATIENT
  Age: 40 Year
  Sex: Male

DRUGS (5)
  1. ZYPREXA [Suspect]
     Indication: ANXIETY
     Dosage: 10 MG, DAILY (1/D)
     Route: 048
     Dates: start: 20080401
  2. ZYPREXA [Suspect]
     Indication: ANXIETY
     Dosage: 20 MG, AS NEEDED
     Route: 030
     Dates: start: 20080517, end: 20080517
  3. ABILIFY [Concomitant]
     Indication: BORDERLINE PERSONALITY DISORDER
     Dosage: 30 MG, DAILY (1/D)
     Route: 048
     Dates: start: 20080101, end: 20080401
  4. ABILIFY [Concomitant]
     Dosage: 20 MG, DAILY (1/D)
     Route: 048
     Dates: start: 20080401
  5. OXAZEPAM [Concomitant]
     Indication: BORDERLINE PERSONALITY DISORDER
     Route: 048
     Dates: start: 20080101

REACTIONS (4)
  - AKATHISIA [None]
  - ANXIETY [None]
  - OVERDOSE [None]
  - PLEUROTHOTONUS [None]
